FAERS Safety Report 21679532 (Version 1)
Quarter: 2022Q4

REPORT INFORMATION
  Report Type: Report from Study
  Country: US (occurrence: US)
  Receive Date: 20221205
  Receipt Date: 20221205
  Transmission Date: 20230113
  Serious: Yes (Hospitalization)
  Sender: FDA-Public Use
  Company Number: US-BRISTOL-MYERS SQUIBB COMPANY-2022-145954

PATIENT
  Age: 69 Year
  Sex: Female
  Weight: 73.48 kg

DRUGS (1)
  1. POMALYST [Suspect]
     Active Substance: POMALIDOMIDE
     Indication: Plasma cell myeloma
     Dosage: 2 MG, DAILY
     Route: 048
     Dates: start: 20190827

REACTIONS (2)
  - Influenza [Recovering/Resolving]
  - Blood potassium abnormal [Recovering/Resolving]
